FAERS Safety Report 6900029-5 (Version None)
Quarter: 2010Q3

REPORT INFORMATION
  Report Type: 
  Country: None (occurrence: None)
  Receive Date: 20100708
  Receipt Date: 20100408
  Transmission Date: 20110219
  Serious: Yes (Other)
  Sender: FDA-Public Use
  Company Number: 2010045430

PATIENT
  Age: 40 Year
  Sex: Female
  Weight: 69 kg

DRUGS (1)
  1. CHANTIX [Suspect]
     Indication: SMOKING CESSATION THERAPY
     Dosage: 0.5 MG, 1X/DAY
     Dates: start: 20100322, end: 20100301

REACTIONS (6)
  - ASTHENIA [None]
  - MALAISE [None]
  - MENSTRUATION IRREGULAR [None]
  - NASOPHARYNGITIS [None]
  - SINUS DISORDER [None]
  - SLEEP DISORDER [None]
